FAERS Safety Report 9313978 (Version 1)
Quarter: 2013Q2

REPORT INFORMATION
  Report Type: Spontaneous
  Country: US (occurrence: None)
  Receive Date: 20130524
  Receipt Date: 20130524
  Transmission Date: 20140414
  Serious: No
  Sender: FDA-Public Use
  Company Number: None

PATIENT
  Age: 57 Year
  Sex: Female

DRUGS (1)
  1. PROLIA [Suspect]
     Dates: start: 20120911

REACTIONS (5)
  - Tooth erosion [None]
  - Tongue ulceration [None]
  - Dysphagia [None]
  - Speech disorder [None]
  - Post procedural complication [None]
